FAERS Safety Report 15726061 (Version 1)
Quarter: 2018Q4

REPORT INFORMATION
  Report Type: Spontaneous
  Country: US (occurrence: US)
  Receive Date: 20181216
  Receipt Date: 20181216
  Transmission Date: 20190205
  Serious: No
  Sender: FDA-Public Use
  Company Number: US-SUPERNUS PHARMACEUTICALS, INC.-2018SUP00032

PATIENT
  Sex: Female
  Weight: 86.17 kg

DRUGS (10)
  1. METFORMIN EXTENDED RELEASE [Concomitant]
     Active Substance: METFORMIN HYDROCHLORIDE
     Dosage: UNK, USED INFREQUENTLY
  2. KRILL OIL [Concomitant]
     Active Substance: DIETARY SUPPLEMENT
  3. BIOTIN [Concomitant]
     Active Substance: BIOTIN
  4. RESTORIL [Concomitant]
     Active Substance: TEMAZEPAM
     Dosage: UNK, AS NEEDED
  5. ZYRTEC [Concomitant]
     Active Substance: CETIRIZINE HYDROCHLORIDE
     Dosage: 5 MG, 1X/DAY
  6. TROKENDI XR [Suspect]
     Active Substance: TOPIRAMATE
     Indication: MIGRAINE
     Dosage: 50 MG, 1X/DAY
     Dates: start: 201711, end: 20180125
  7. VITAMIN D [Concomitant]
     Active Substance: CHOLECALCIFEROL
  8. VITAMIN B12 [Concomitant]
     Active Substance: CYANOCOBALAMIN
  9. TYLENOL [Concomitant]
     Active Substance: ACETAMINOPHEN
     Dosage: UNK, 1X/DAY
  10. CALCIUM WITH MAGNESIUM AND ZINC [Concomitant]

REACTIONS (3)
  - Eye pain [Recovering/Resolving]
  - Ocular hyperaemia [Recovering/Resolving]
  - Abnormal sensation in eye [Recovering/Resolving]
